FAERS Safety Report 7419601-1 (Version None)
Quarter: 2011Q2

REPORT INFORMATION
  Report Type: 
  Country: None (occurrence: None)
  Receive Date: 20110418
  Receipt Date: 20110413
  Transmission Date: 20111010
  Serious: Yes (Hospitalization)
  Sender: FDA-Public Use
  Company Number: GB-NOVOPROD-324975

PATIENT
  Age: 35 Year
  Sex: Female
  Weight: 111 kg

DRUGS (1)
  1. VICTOZA [Suspect]
     Indication: DIABETES MELLITUS INADEQUATE CONTROL
     Dosage: 1.2 MG, QD
     Dates: start: 20101214

REACTIONS (2)
  - MASTITIS [None]
  - SUPRAVENTRICULAR TACHYCARDIA [None]
